FAERS Safety Report 17324753 (Version 1)
Quarter: 2020Q1

REPORT INFORMATION
  Report Type: Spontaneous
  Country: US (occurrence: US)
  Receive Date: 20200125
  Receipt Date: 20200125
  Transmission Date: 20200409
  Serious: No
  Sender: FDA-Public Use
  Company Number: None

PATIENT
  Age: 51 Year
  Sex: Female
  Weight: 69 kg

DRUGS (8)
  1. CLOPIDOGREL [Suspect]
     Active Substance: CLOPIDOGREL BISULFATE
     Indication: ANTIPLATELET THERAPY
     Dosage: ?          QUANTITY:1 TABLET(S);?
     Route: 048
     Dates: start: 20191224
  2. METROPOLOL [Concomitant]
     Active Substance: METOPROLOL
  3. ARANESP SHOTS [Concomitant]
  4. SENSIPAR [Concomitant]
     Active Substance: CINACALCET HYDROCHLORIDE
  5. AMPLONIDINE [Concomitant]
  6. CLONIDINE PATCH [Concomitant]
     Active Substance: CLONIDINE
  7. VITAMIN D3 [Concomitant]
     Active Substance: CHOLECALCIFEROL
  8. FERROUS SULFATE. [Concomitant]
     Active Substance: FERROUS SULFATE

REACTIONS (14)
  - Pruritus [None]
  - Skin exfoliation [None]
  - Haemorrhage [None]
  - Feeling hot [None]
  - Dry skin [None]
  - Dialysis [None]
  - Oedema [None]
  - Pain in extremity [None]
  - Headache [None]
  - Asthenia [None]
  - Skin fissures [None]
  - Discomfort [None]
  - Pain [None]
  - Back pain [None]

NARRATIVE: CASE EVENT DATE: 20191224
